FAERS Safety Report 17950781 (Version 1)
Quarter: 2020Q2

REPORT INFORMATION
  Report Type: Spontaneous
  Country: US (occurrence: US)
  Receive Date: 20200626
  Receipt Date: 20200626
  Transmission Date: 20200714
  Serious: Yes (Hospitalization, Other)
  Sender: FDA-Public Use
  Company Number: US-AMGEN-USASP2020100066

PATIENT
  Sex: Male

DRUGS (1)
  1. REPATHA [Suspect]
     Active Substance: EVOLOCUMAB
     Indication: PRODUCT USED FOR UNKNOWN INDICATION
     Dosage: UNK, Q2WK (EVERY 16 TO 18 DAYS)
     Route: 065
     Dates: start: 2020

REACTIONS (3)
  - Diverticulitis [Unknown]
  - Torticollis [Unknown]
  - Myalgia [Unknown]

NARRATIVE: CASE EVENT DATE: 2020
